FAERS Safety Report 8444721-2 (Version None)
Quarter: 2012Q2

REPORT INFORMATION
  Report Type: 
  Country: None (occurrence: None)
  Receive Date: 20120611
  Receipt Date: 20120530
  Transmission Date: 20120825
  Serious: Yes (Hospitalization)
  Sender: FDA-Public Use
  Company Number: ACO_29350_2012

PATIENT
  Age: 79 Year
  Sex: Female
  Weight: 90.7 kg

DRUGS (10)
  1. SYMMETREL [Concomitant]
  2. AMITRIPTYLINE HCL [Concomitant]
  3. CELEBREX [Concomitant]
  4. VASOTEC [Concomitant]
  5. AMPYRA [Suspect]
     Indication: MULTIPLE SCLEROSIS
     Dates: end: 20111201
  6. AVONEX [Concomitant]
  7. PHENERGAN [Concomitant]
  8. FUROSEMIDE [Concomitant]
  9. MECLIZINE [Concomitant]
  10. OXCARBAZEPINE [Concomitant]

REACTIONS (4)
  - FEMUR FRACTURE [None]
  - INTESTINAL OBSTRUCTION [None]
  - GASTRIC DISORDER [None]
  - FALL [None]
